FAERS Safety Report 16195742 (Version 3)
Quarter: 2024Q3

REPORT INFORMATION
  Report Type: Spontaneous
  Country: JP (occurrence: JP)
  Receive Date: 20190415
  Receipt Date: 20240718
  Transmission Date: 20241017
  Serious: Yes (Death, Life-Threatening, Hospitalization, Other)
  Sender: MERCK
  Company Number: JP-MSD-M2019-02911

PATIENT
  Age: 73 Year
  Sex: Female
  Weight: 39 kg

DRUGS (12)
  1. KEYTRUDA [Suspect]
     Active Substance: PEMBROLIZUMAB
     Indication: Lung adenocarcinoma stage IV
     Dosage: 200 MILLIGRAM, Q3W
     Route: 041
     Dates: start: 20180130, end: 20190116
  2. KEYTRUDA [Suspect]
     Active Substance: PEMBROLIZUMAB
     Indication: PD-L1 positive cancer
  3. CARBAZOCHROME SODIUM SULFONATE [Concomitant]
     Active Substance: CARBAZOCHROME SODIUM SULFONATE
     Indication: Prophylaxis
     Dosage: 30 MILLIGRAM, TID
     Route: 048
  4. TRANEXAMIC ACID [Concomitant]
     Active Substance: TRANEXAMIC ACID
     Indication: Prophylaxis
     Dosage: 250 MILLIGRAM, TID
     Route: 048
  5. CILNIDIPINE [Concomitant]
     Active Substance: CILNIDIPINE
     Indication: Hypertension
     Dosage: 10 MILLIGRAM, QD
     Route: 048
  6. NEXIUM [Concomitant]
     Active Substance: ESOMEPRAZOLE MAGNESIUM
     Indication: Prophylaxis
     Dosage: 20 MILLIGRAM, QD
     Route: 048
  7. CELECOXIB [Concomitant]
     Active Substance: CELECOXIB
     Indication: Cancer pain
     Dosage: 200 MILLIGRAM, BID
     Route: 048
     Dates: end: 20190209
  8. PIRENOXINE [Concomitant]
     Active Substance: PIRENOXINE
     Indication: Cataract
     Dosage: PROPER QUANTITY, QID
     Route: 051
  9. LEVOFLOXACIN HEMIHYDRATE [Concomitant]
     Active Substance: LEVOFLOXACIN
     Indication: Infection prophylaxis
     Dosage: PROPER QUANTITY, QID
     Route: 051
  10. FML [Concomitant]
     Active Substance: FLUOROMETHOLONE
     Indication: Infection prophylaxis
     Dosage: PROPER QUANTITY, QID
     Route: 051
  11. CARTEOLOL HYDROCHLORIDE [Concomitant]
     Active Substance: CARTEOLOL HYDROCHLORIDE
     Indication: Ocular hypertension
     Dosage: PROPER QUANTITY, QD
     Route: 051
  12. MAGNESIUM OXIDE [Concomitant]
     Active Substance: MAGNESIUM OXIDE
     Indication: Constipation
     Dosage: 1500 MILLIGRAM, TID
     Route: 048
     Dates: end: 20190209

REACTIONS (2)
  - Malignant neoplasm progression [Fatal]
  - Pulmonary toxicity [Recovered/Resolved]

NARRATIVE: CASE EVENT DATE: 20190206
